FAERS Safety Report 4701849-8 (Version None)
Quarter: 2005Q2

REPORT INFORMATION
  Report Type: 
  Country: None (occurrence: None)
  Receive Date: 20050627
  Receipt Date: 20050617
  Transmission Date: 20051028
  Serious: Yes (Hospitalization, Other)
  Sender: FDA-Public Use
  Company Number: 2002-01-0575

PATIENT
  Age: 33 Year
  Sex: Female

DRUGS (3)
  1. PEG-INTRON [Suspect]
     Indication: HEPATITIS C
     Dosage: 150 MCG QWK SUBCUTANEOUS
     Route: 058
     Dates: start: 20011110, end: 20011222
  2. REBETOL [Suspect]
     Indication: HEPATITIS C
     Dosage: 1200 MG QD ORAL
     Route: 048
     Dates: start: 20011110, end: 20011222
  3. PRILOSEC [Concomitant]

REACTIONS (10)
  - ABNORMAL BEHAVIOUR [None]
  - ALOPECIA [None]
  - ANAEMIA [None]
  - CONFUSIONAL STATE [None]
  - DEPRESSION [None]
  - HAEMORRHAGE [None]
  - MEMORY IMPAIRMENT [None]
  - RED BLOOD CELL COUNT DECREASED [None]
  - SKIN DISORDER [None]
  - WHITE BLOOD CELL COUNT DECREASED [None]
